FAERS Safety Report 23132599 (Version 1)
Quarter: 2023Q4

REPORT INFORMATION
  Report Type: Report from Study
  Country: LB (occurrence: LB)
  Receive Date: 20231101
  Receipt Date: 20231101
  Transmission Date: 20240109
  Serious: Yes (Death, Hospitalization)
  Sender: FDA-Public Use
  Company Number: LB-ABBVIE-5381528

PATIENT
  Age: 57 Year
  Sex: Female

DRUGS (8)
  1. HUMIRA [Suspect]
     Active Substance: ADALIMUMAB
     Indication: Crohn^s disease
     Dosage: 160MG LOADING DOSE, FORM STRENGTH: 40 MILLIGRAM
     Route: 058
     Dates: start: 20210222, end: 20210222
  2. HUMIRA [Suspect]
     Active Substance: ADALIMUMAB
     Dosage: FORM STRENGTH: 40 MILLIGRAM, FIRST ADMIN DATE: MAR 2021
     Route: 058
     Dates: end: 202108
  3. HUMIRA [Suspect]
     Active Substance: ADALIMUMAB
     Dosage: FORM STRENGTH: 40 MILLIGRAM
     Route: 058
     Dates: start: 202201, end: 202201
  4. HUMIRA [Suspect]
     Active Substance: ADALIMUMAB
     Dosage: 80MG LOADING DOSE, FORM STRENGTH: 40 MILLIGRAM
     Route: 058
     Dates: start: 202103, end: 202103
  5. NEXIUM [Concomitant]
     Active Substance: ESOMEPRAZOLE MAGNESIUM
     Indication: Product used for unknown indication
     Route: 065
  6. PREDNISONE [Concomitant]
     Active Substance: PREDNISONE
     Indication: Product used for unknown indication
     Dosage: 20MG 2 TABS TO BE TAPERED GRADUALLY
     Route: 065
     Dates: end: 2021
  7. SMECTALIA [Concomitant]
     Indication: Product used for unknown indication
     Route: 065
  8. MAGNESIUM FORTE [Concomitant]
     Indication: Product used for unknown indication
     Dosage: PLUS
     Route: 065

REACTIONS (4)
  - General physical health deterioration [Fatal]
  - COVID-19 [Recovered/Resolved]
  - Crohn^s disease [Not Recovered/Not Resolved]
  - Gait disturbance [Not Recovered/Not Resolved]

NARRATIVE: CASE EVENT DATE: 20220125
